FAERS Safety Report 5108280-4 (Version None)
Quarter: 2006Q3

REPORT INFORMATION
  Report Type: 
  Country: None (occurrence: None)
  Receive Date: 20060919
  Receipt Date: 20060328
  Transmission Date: 20061208
  Serious: Yes (Hospitalization)
  Sender: FDA-Public Use
  Company Number: US-BRISTOL-MYERS SQUIBB COMPANY-13329511

PATIENT
  Age: 37 Year
  Sex: Female
  Weight: 103 kg

DRUGS (8)
  1. MEGACE [Suspect]
     Indication: MENORRHAGIA
  2. COUMADIN [Concomitant]
  3. METOPROLOL [Concomitant]
  4. LISINOPRIL [Concomitant]
  5. METHADONE HCL [Concomitant]
  6. METFORMIN HYDROCHLORIDE [Concomitant]
  7. PRILOSEC [Concomitant]
  8. CEFAZOLIN [Concomitant]

REACTIONS (2)
  - EMBOLISM [None]
  - PULMONARY EMBOLISM [None]
